FAERS Safety Report 8558276-5 (Version None)
Quarter: 2012Q3

REPORT INFORMATION
  Report Type: 
  Country: None (occurrence: None)
  Receive Date: 20120727
  Receipt Date: 20120727
  Transmission Date: 20120928
  Serious: Yes (Hospitalization)
  Sender: FDA-Public Use
  Company Number: None

PATIENT
  Age: 81 Year
  Sex: Male
  Weight: 74 kg

DRUGS (14)
  1. CLOPIDOGREL [Suspect]
     Indication: CORONARY ARTERY DISEASE
     Dosage: 75 MG QHS PO CHRONIC
     Route: 048
  2. ISOSORBIDE MONONITRATE [Concomitant]
  3. METOPROLOL TARTRATE [Concomitant]
  4. VIT D3 [Concomitant]
  5. PANTOPRAZOLE [Concomitant]
  6. ADVAIR DISKUS 100/50 [Concomitant]
  7. AMIODARONE HCL [Concomitant]
  8. DUONEB [Concomitant]
  9. FUROSEMIDE [Concomitant]
  10. ALPRAZOLAM [Concomitant]
  11. EZETIMIBE [Concomitant]
  12. CALCITRIOL [Concomitant]
  13. COUMADIN [Suspect]
     Indication: ATRIAL FIBRILLATION
     Dosage: 5MG Q T TH 5 MG/ 2 MG Q S M W F  PO  CHRONIC
     Route: 048
  14. ASPIRIN [Suspect]
     Indication: CORONARY ARTERY DISEASE
     Dosage: 325MG DAILY CHRONIC

REACTIONS (4)
  - HAEMORRHOIDS [None]
  - HAEMOGLOBIN DECREASED [None]
  - GASTROINTESTINAL HAEMORRHAGE [None]
  - DIVERTICULUM [None]
